FAERS Safety Report 12631735 (Version 2)
Quarter: 2016Q3

REPORT INFORMATION
  Report Type: Spontaneous
  Country: US (occurrence: US)
  Receive Date: 20160808
  Receipt Date: 20160808
  Transmission Date: 20161109
  Serious: No
  Sender: FDA-Public Use
  Company Number: US-BEH-2016060843

PATIENT
  Sex: Female
  Weight: 90 kg

DRUGS (23)
  1. VENLAFAXINE [Concomitant]
     Active Substance: VENLAFAXINE HYDROCHLORIDE
  2. BUPROPION. [Concomitant]
     Active Substance: BUPROPION
  3. HIZENTRA [Suspect]
     Active Substance: HUMAN IMMUNOGLOBULIN G
     Indication: CHRONIC KIDNEY DISEASE
     Route: 058
  4. DIPHENHYDRAMINE. [Concomitant]
     Active Substance: DIPHENHYDRAMINE
  5. LMX [Concomitant]
     Active Substance: LIDOCAINE
  6. PROPRANOLOL [Concomitant]
     Active Substance: PROPRANOLOL\PROPRANOLOL HYDROCHLORIDE
  7. HIZENTRA [Suspect]
     Active Substance: HUMAN IMMUNOGLOBULIN G
     Indication: IMMUNODEFICIENCY
     Route: 058
  8. PROMETHAZINE-CODEINE [Concomitant]
     Active Substance: CODEINE PHOSPHATE\PROMETHAZINE
  9. DILAUDID [Concomitant]
     Active Substance: HYDROMORPHONE HYDROCHLORIDE
  10. ACETAMINOPHEN. [Concomitant]
     Active Substance: ACETAMINOPHEN
  11. SINGULAIR [Concomitant]
     Active Substance: MONTELUKAST SODIUM
  12. DEPO-PROVERA [Concomitant]
     Active Substance: MEDROXYPROGESTERONE ACETATE
  13. NORCO [Concomitant]
     Active Substance: ACETAMINOPHEN\HYDROCODONE BITARTRATE
  14. QVAR [Concomitant]
     Active Substance: BECLOMETHASONE DIPROPIONATE
  15. PANTOPRAZOLE [Concomitant]
     Active Substance: PANTOPRAZOLE SODIUM
  16. LEVOFLOXACIN. [Concomitant]
     Active Substance: LEVOFLOXACIN
  17. EPIPEN [Concomitant]
     Active Substance: EPINEPHRINE
  18. PREDNISONE. [Concomitant]
     Active Substance: PREDNISONE
  19. PROGRAF [Concomitant]
     Active Substance: TACROLIMUS\TACROLIMUS ANHYDROUS
  20. ASPIRIN. [Concomitant]
     Active Substance: ASPIRIN
  21. HIZENTRA [Suspect]
     Active Substance: HUMAN IMMUNOGLOBULIN G
     Indication: ANAEMIA
     Route: 058
  22. VENTOLIN [Concomitant]
     Active Substance: ALBUTEROL SULFATE
  23. MYFORTIC [Concomitant]
     Active Substance: MYCOPHENOLATE SODIUM

REACTIONS (1)
  - Ear infection [Unknown]
